FAERS Safety Report 9856213 (Version 2)
Quarter: 2014Q2

REPORT INFORMATION
  Report Type: Spontaneous
  Country: US (occurrence: US)
  Receive Date: 20140130
  Receipt Date: 20140522
  Transmission Date: 20141212
  Serious: Yes (Congenital Anomaly, Other)
  Sender: FDA-Public Use
  Company Number: US-PFIZER INC-2014026829

PATIENT
  Sex: Female

DRUGS (4)
  1. ZOLOFT [Suspect]
     Dosage: UNK
     Route: 064
     Dates: start: 201101, end: 201111
  2. SERTRALINE HCL [Suspect]
     Dosage: UNK
     Route: 064
     Dates: start: 201101, end: 201111
  3. TYLENOL [Concomitant]
     Dosage: UNK
     Route: 064
  4. PHENERGAN [Concomitant]
     Dosage: UNK
     Route: 064

REACTIONS (6)
  - Maternal exposure during pregnancy [Unknown]
  - Heart disease congenital [Unknown]
  - Congenital intestinal malformation [Unknown]
  - Ventricular septal defect [Unknown]
  - Anal fistula [Unknown]
  - Anorectal disorder [Unknown]
